FAERS Safety Report 18399370 (Version 1)
Quarter: 2020Q4

REPORT INFORMATION
  Report Type: Spontaneous
  Country: AU (occurrence: AU)
  Receive Date: 20201019
  Receipt Date: 20201019
  Transmission Date: 20210114
  Serious: Yes (Hospitalization, Other)
  Sender: FDA-Public Use
  Company Number: AU-PFIZER INC-2020400910

PATIENT
  Age: 27 Year
  Sex: Female

DRUGS (7)
  1. LYRICA [Suspect]
     Active Substance: PREGABALIN
     Indication: INSOMNIA
     Dosage: 300 MG, 2X/DAY
  2. LYRICA [Suspect]
     Active Substance: PREGABALIN
     Indication: PELVIC PAIN
     Dosage: 225MG BD (2X/DAY)
  3. SEROQUEL [Concomitant]
     Active Substance: QUETIAPINE FUMARATE
     Dosage: UNK
  4. LYRICA [Suspect]
     Active Substance: PREGABALIN
     Indication: STRESS
  5. DIAZEPAM. [Concomitant]
     Active Substance: DIAZEPAM
  6. ENDONE [Concomitant]
     Active Substance: OXYCODONE HYDROCHLORIDE
  7. TAPENTADOL [Concomitant]
     Active Substance: TAPENTADOL

REACTIONS (4)
  - Product use in unapproved indication [Unknown]
  - Intentional overdose [Unknown]
  - Haemorrhage [Recovered/Resolved]
  - Off label use [Unknown]
